FAERS Safety Report 6071863-1 (Version None)
Quarter: 2009Q1

REPORT INFORMATION
  Report Type: 
  Country: None (occurrence: None)
  Receive Date: 20090210
  Receipt Date: 20090129
  Transmission Date: 20090719
  Serious: Yes (Hospitalization, Other)
  Sender: FDA-Public Use
  Company Number: US-BAYER-200835654NA

PATIENT
  Age: 31 Year
  Sex: Female
  Weight: 47 kg

DRUGS (3)
  1. MIRENA [Suspect]
     Indication: CONTRACEPTION
     Route: 015
     Dates: start: 20051115
  2. INDERAL LA [Concomitant]
     Indication: TACHYCARDIA
  3. MIDODRINE [Concomitant]
     Indication: DRUG USE FOR UNKNOWN INDICATION
     Dosage: TOTAL DAILY DOSE: 15 MG

REACTIONS (2)
  - AMENORRHOEA [None]
  - PULMONARY EMBOLISM [None]
